FAERS Safety Report 4688451-1 (Version None)
Quarter: 2005Q2

REPORT INFORMATION
  Report Type: 
  Country: None (occurrence: None)
  Receive Date: 20050609
  Receipt Date: 20050525
  Transmission Date: 20051028
  Serious: Yes (Other)
  Sender: FDA-Public Use
  Company Number: 214764

PATIENT
  Age: 58 Year
  Sex: Female
  Weight: 44.5 kg

DRUGS (11)
  1. RITUXAN [Suspect]
     Indication: NON-HODGKIN'S LYMPHOMA
     Dosage: 500 MG, INTRAVENOUS
     Route: 042
     Dates: start: 20011005, end: 20011005
  2. RITUXAN [Suspect]
     Indication: NON-HODGKIN'S LYMPHOMA
     Dosage: 500 MG, INTRAVENOUS
     Route: 042
     Dates: start: 20011012, end: 20011012
  3. RITUXAN [Suspect]
     Indication: NON-HODGKIN'S LYMPHOMA
     Dosage: 500 MG, INTRAVENOUS
     Route: 042
     Dates: start: 20011019, end: 20011019
  4. RITUXAN [Suspect]
     Indication: NON-HODGKIN'S LYMPHOMA
     Dosage: 500 MG, INTRAVENOUS
     Route: 042
     Dates: start: 20011026, end: 20011026
  5. CALONAL (ACETAMINOPHEN) [Concomitant]
  6. CHLOR-TRIMETON (CHLORPHENIRAMINE MALEATE) [Concomitant]
  7. SOLU-MEDROL [Concomitant]
  8. SELBEX (TEPRENONE) [Concomitant]
  9. FAMOTIDINE [Concomitant]
  10. ALLOPURINOL [Concomitant]
  11. SULFAMETHOXAZOLE + TRIMETHOPRIM [Concomitant]

REACTIONS (3)
  - ANAPHYLACTOID REACTION [None]
  - HAEMOGLOBIN DECREASED [None]
  - PYREXIA [None]
